FAERS Safety Report 8488837-3 (Version None)
Quarter: 2012Q3

REPORT INFORMATION
  Report Type: 
  Country: None (occurrence: None)
  Receive Date: 20120705
  Receipt Date: 20120625
  Transmission Date: 20120928
  Serious: Yes (Other)
  Sender: FDA-Public Use
  Company Number: GB-ASTRAZENECA-2012SE28807

PATIENT
  Sex: Male

DRUGS (6)
  1. LAMOTRGINE [Concomitant]
  2. DIAZEPAM [Concomitant]
  3. LITHIUM CARBONATE [Concomitant]
  4. SEROQUEL [Suspect]
     Route: 048
     Dates: start: 20120101
  5. SEROQUEL [Suspect]
     Route: 048
  6. SEROQUEL [Suspect]
     Indication: BIPOLAR DISORDER
     Route: 048
     Dates: start: 20100101, end: 20120301

REACTIONS (12)
  - VOMITING [None]
  - INJURY [None]
  - BASAL CELL CARCINOMA [None]
  - CONTUSION [None]
  - AGITATION [None]
  - DISINHIBITION [None]
  - PARANOIA [None]
  - DRUG WITHDRAWAL SYNDROME [None]
  - HALLUCINATION [None]
  - DISTURBANCE IN ATTENTION [None]
  - MALAISE [None]
  - IRRITABILITY [None]
